FAERS Safety Report 4683202-9 (Version None)
Quarter: 2005Q2

REPORT INFORMATION
  Report Type: 
  Country: None (occurrence: None)
  Receive Date: 20050602
  Receipt Date: 20050202
  Transmission Date: 20051028
  Serious: No
  Sender: FDA-Public Use
  Company Number: USA050289687

PATIENT
  Age: 47 Year
  Sex: Male

DRUGS (1)
  1. CYMBALTA [Suspect]
     Indication: DEPRESSION
     Dosage: 30 MG IN THE MORNING
     Dates: start: 20050201, end: 20050203

REACTIONS (7)
  - FEELING JITTERY [None]
  - HYPERHIDROSIS [None]
  - NAUSEA [None]
  - NERVOUSNESS [None]
  - PAIN OF SKIN [None]
  - PANIC ATTACK [None]
  - VISION BLURRED [None]
